FAERS Safety Report 9913155 (Version 4)
Quarter: 2014Q4

REPORT INFORMATION
  Report Type: Report from Study
  Country: US (occurrence: US)
  Receive Date: 20140220
  Receipt Date: 20141211
  Transmission Date: 20150529
  Serious: Yes (Hospitalization, Other)
  Sender: FDA-Public Use
  Company Number: US-UCBSA-113086

PATIENT
  Age: 29 Year
  Sex: Male
  Weight: 73.9 kg

DRUGS (44)
  1. VICODIN [Concomitant]
     Active Substance: ACETAMINOPHEN\HYDROCODONE BITARTRATE
     Indication: PAIN
     Dosage: 5/500 MG
     Route: 048
     Dates: start: 20131125, end: 20131130
  2. PREDNISONE. [Concomitant]
     Active Substance: PREDNISONE
     Dates: start: 20131227, end: 20140102
  3. D50 [Concomitant]
     Indication: BLOOD POTASSIUM INCREASED
     Dosage: 25 G X 1
     Route: 042
     Dates: start: 20131215, end: 20131215
  4. REGLAN [Concomitant]
     Active Substance: METOCLOPRAMIDE HYDROCHLORIDE
     Dosage: 10 MG
     Route: 042
     Dates: start: 20131222, end: 20131226
  5. KAYEXALATE [Concomitant]
     Active Substance: SODIUM POLYSTYRENE SULFONATE
     Indication: BLOOD POTASSIUM INCREASED
     Dosage: 30 GRAMS X 1
     Route: 048
     Dates: start: 20140102, end: 20140102
  6. DIFLUCAN [Concomitant]
     Active Substance: FLUCONAZOLE
     Indication: ABSCESS
     Dosage: 200 MG DAILY
     Route: 048
     Dates: start: 20131125, end: 20131127
  7. DILAUDID [Concomitant]
     Active Substance: HYDROMORPHONE HYDROCHLORIDE
     Indication: PAIN
     Dosage: 2-4 MG
     Route: 048
     Dates: start: 20131209
  8. ZOFRAN [Concomitant]
     Active Substance: ONDANSETRON HYDROCHLORIDE
     Dosage: 4 MG
     Route: 048
     Dates: start: 20131218, end: 20131218
  9. FLAGYL [Concomitant]
     Active Substance: METRONIDAZOLE\METRONIDAZOLE HYDROCHLORIDE
     Dosage: 500 MG
     Route: 042
     Dates: start: 20131203, end: 20131207
  10. CALCIUM GLUCONATE. [Concomitant]
     Active Substance: CALCIUM GLUCONATE
     Indication: BLOOD CALCIUM DECREASED
     Dosage: 1 GRAM X1
     Route: 042
     Dates: start: 20131215, end: 20131215
  11. PROTONIX [Concomitant]
     Active Substance: PANTOPRAZOLE SODIUM
     Indication: PROPHYLAXIS
     Dosage: 40 MG, 2X/DAY (BID)
     Route: 042
     Dates: start: 20131218, end: 20131227
  12. CALCIUM CARBONATE. [Concomitant]
     Active Substance: CALCIUM CARBONATE
     Indication: BLOOD CALCIUM DECREASED
     Dosage: 1200 MG, 3X/DAY (TID)
     Route: 048
     Dates: start: 20140101, end: 20140105
  13. ERGOCALCIFEROL. [Concomitant]
     Active Substance: ERGOCALCIFEROL
     Dosage: MONDAYS N TUESDAYS
     Route: 048
     Dates: start: 20140101, end: 20140101
  14. CIPRO [Concomitant]
     Active Substance: CIPROFLOXACIN HYDROCHLORIDE
     Dosage: 400 MG, 2X/DAY (BID)
     Route: 042
     Dates: start: 20131203, end: 20131207
  15. MAGNESIUM SULFATE. [Concomitant]
     Active Substance: MAGNESIUM SULFATE
     Indication: BLOOD MAGNESIUM DECREASED
     Dosage: 1G X 1
     Route: 042
     Dates: start: 20131227, end: 20131227
  16. MARINOL [Concomitant]
     Active Substance: DRONABINOL
     Indication: NAUSEA
     Dosage: 2.5 MG, 2X/DAY (BID)
     Dates: start: 20131227
  17. CALCITRIOL. [Concomitant]
     Active Substance: CALCITRIOL
     Indication: BLOOD CALCIUM DECREASED
     Dosage: .5 ?G, 2X/DAY (BID)
     Route: 048
     Dates: start: 20140101, end: 20140105
  18. LACTATED RINGERS [Concomitant]
     Active Substance: CALCIUM CHLORIDE\POTASSIUM CHLORIDE\SODIUM CHLORIDE\SODIUM LACTATE
     Dosage: 150 ML/H. IV HYDRATION
     Route: 042
     Dates: start: 20131124, end: 20131127
  19. AUGMENTIN [Concomitant]
     Active Substance: AMOXICILLIN\CLAVULANATE POTASSIUM
     Dosage: 875/125 MG. TWICE DAILY
     Route: 048
     Dates: start: 20131127, end: 20131130
  20. VANCOMYCIN [Concomitant]
     Active Substance: VANCOMYCIN
     Indication: ABSCESS
     Dosage: 1 G EVERY 12 HOURS
     Route: 042
     Dates: start: 20131201, end: 20131203
  21. AVELOX [Concomitant]
     Active Substance: MOXIFLOXACIN HYDROCHLORIDE
     Indication: ABSCESS
     Dosage: 400 MG DAILY
     Route: 048
     Dates: start: 20131218, end: 20131224
  22. PRIMAXIN [Concomitant]
     Active Substance: CILASTATIN SODIUM\IMIPENEM
     Indication: ABSCESS
     Dosage: 1000 MG, 3X/DAY (TID)
     Route: 042
     Dates: start: 20131209, end: 20131218
  23. PRIMAXIN [Concomitant]
     Active Substance: CILASTATIN SODIUM\IMIPENEM
     Dates: start: 20131207, end: 20131209
  24. POTASSIUM CHLORIDE. [Concomitant]
     Active Substance: POTASSIUM CHLORIDE
     Indication: BLOOD POTASSIUM DECREASED
     Dosage: 10 MEQ X 2
     Route: 042
     Dates: start: 20131226, end: 20131226
  25. VICODIN [Concomitant]
     Active Substance: ACETAMINOPHEN\HYDROCODONE BITARTRATE
     Dosage: 5/325 MG
     Route: 048
     Dates: start: 20140103
  26. PREDNISONE. [Concomitant]
     Active Substance: PREDNISONE
     Dates: start: 20140105
  27. MORPHINE [Concomitant]
     Active Substance: MORPHINE
     Indication: PAIN
     Dosage: 2-4 MG
     Route: 042
     Dates: start: 20131202, end: 20131209
  28. REGULAR INSULIN [Concomitant]
     Active Substance: INSULIN NOS
     Indication: BLOOD POTASSIUM INCREASED
     Dosage: 10 UNITS X 2
     Route: 042
     Dates: start: 20131215, end: 20131215
  29. SOLU-MEDROL [Concomitant]
     Active Substance: METHYLPREDNISOLONE SODIUM SUCCINATE
     Indication: CROHN^S DISEASE
     Dates: start: 20140102, end: 20140104
  30. CERTOLIZUMAB PEGOL CD [Suspect]
     Active Substance: CERTOLIZUMAB PEGOL
     Indication: CROHN^S DISEASE
     Route: 058
     Dates: start: 20121120
  31. DIFLUCAN [Concomitant]
     Active Substance: FLUCONAZOLE
     Dosage: 200 MG DAILY
     Route: 042
     Dates: start: 20131207, end: 20131218
  32. PREDNISONE. [Concomitant]
     Active Substance: PREDNISONE
     Dosage: 5 MG, 2X/DAY (BID)
     Dates: start: 20131125, end: 201311
  33. PHOSLO [Concomitant]
     Active Substance: CALCIUM ACETATE
     Indication: ACUTE KIDNEY INJURY
     Dosage: 667 MG WITH MEALS
     Route: 048
     Dates: start: 20131216, end: 20131223
  34. TRAMADOL [Concomitant]
     Active Substance: TRAMADOL
     Indication: PAIN
     Dosage: 50 MG, 3X/DAY (TID)
     Dates: start: 20140102, end: 20140102
  35. DIFLUCAN [Concomitant]
     Active Substance: FLUCONAZOLE
     Dosage: 100 MG DAILY
     Route: 048
     Dates: start: 20131218, end: 20131223
  36. PREDNISONE. [Concomitant]
     Active Substance: PREDNISONE
     Indication: CROHN^S DISEASE
     Dates: start: 2002, end: 200206
  37. ZOSYN [Concomitant]
     Active Substance: PIPERACILLIN SODIUM\TAZOBACTAM SODIUM
     Dosage: 3.375 G, 4X/DAY (QID)
     Route: 042
     Dates: start: 20131130, end: 20131207
  38. CIPRO [Concomitant]
     Active Substance: CIPROFLOXACIN HYDROCHLORIDE
     Indication: ABSCESS
     Dates: start: 2002, end: 2002
  39. REGULAR INSULIN [Concomitant]
     Active Substance: INSULIN NOS
     Dosage: 10 UNITS
     Route: 042
     Dates: start: 20140102, end: 20140102
  40. ZOSYN [Concomitant]
     Active Substance: PIPERACILLIN SODIUM\TAZOBACTAM SODIUM
     Dosage: 3.375 G, 4X/DAY (QID)
     Route: 042
     Dates: start: 20131124, end: 20131127
  41. DILAUDID [Concomitant]
     Active Substance: HYDROMORPHONE HYDROCHLORIDE
     Dosage: 0.25-0-.0.5 MG
     Route: 042
     Dates: start: 20140113, end: 20140124
  42. ZOFRAN [Concomitant]
     Active Substance: ONDANSETRON HYDROCHLORIDE
     Indication: NAUSEA
     Dosage: 4 MG
     Route: 042
     Dates: start: 20131201, end: 20131209
  43. HEPARIN [Concomitant]
     Active Substance: HEPARIN SODIUM
     Indication: PROPHYLAXIS
     Dosage: 5000 UNITS SQ
     Dates: start: 20131215, end: 20131227
  44. D50 [Concomitant]
     Dosage: W IV X 1
     Route: 042
     Dates: start: 20140102, end: 20140102

REACTIONS (6)
  - Adhesion [Recovered/Resolved]
  - Ileus [Not Recovered/Not Resolved]
  - Acute kidney injury [Recovered/Resolved]
  - Dehydration [Recovered/Resolved]
  - Intestinal stenosis [Recovered/Resolved]
  - Abdominal abscess [Recovered/Resolved]

NARRATIVE: CASE EVENT DATE: 20131111
